FAERS Safety Report 6875661-8 (Version None)
Quarter: 2010Q2

REPORT INFORMATION
  Report Type: 
  Country: None (occurrence: None)
  Receive Date: 20100616
  Receipt Date: 20080715
  Transmission Date: 20101027
  Serious: Yes (Other)
  Sender: FDA-Public Use
  Company Number: S08-USA-01767-01

PATIENT
  Age: 13 Year
  Sex: Female

DRUGS (4)
  1. NAMENDA [Suspect]
     Indication: ATTENTION DEFICIT/HYPERACTIVITY DISORDER
     Dosage: 7.5 MG (7.5 MG, ONCE A DAY), ORAL
     Route: 048
     Dates: start: 20070101
  2. LAMICTAL [Suspect]
     Indication: BIPOLAR DISORDER
     Dosage: 160 MG (160 MG, ONCE A DAY), ORAL
     Route: 048
     Dates: start: 20070701
  3. ABILIFY (ARIPIPRAZOLE) (UNKNOWN) [Concomitant]
  4. PAINEX (UNKNOWN) [Concomitant]

REACTIONS (2)
  - AGITATION [None]
  - ANXIETY [None]
